FAERS Safety Report 25836505 (Version 1)
Quarter: 2025Q3

REPORT INFORMATION
  Report Type: Spontaneous
  Country: EU (occurrence: EU)
  Receive Date: 20250923
  Receipt Date: 20250923
  Transmission Date: 20251020
  Serious: Yes (Other)
  Sender: MSN LABORATORIES PRIVATE LIMITED
  Company Number: None

PATIENT

DRUGS (26)
  1. PREGABALIN [Suspect]
     Active Substance: PREGABALIN
     Indication: Bipolar disorder
     Dosage: EACH HOUR (QH) (150 MILLIGRAM/24HOUR)
     Route: 065
  2. HYDROXYZINE [Suspect]
     Active Substance: HYDROXYZINE HYDROCHLORIDE
     Indication: Anxiety
     Dosage: EACH HOUR (QH)
     Route: 065
  3. HYDROXYZINE [Suspect]
     Active Substance: HYDROXYZINE HYDROCHLORIDE
     Indication: Bipolar disorder
     Dosage: EACH HOUR (QH)
     Route: 065
  4. LAMOTRIGINE [Suspect]
     Active Substance: LAMOTRIGINE
     Indication: Bipolar disorder
     Dosage: UP TO 150 MG/24 H
     Route: 065
  5. LORAZEPAM [Suspect]
     Active Substance: LORAZEPAM
     Indication: Bipolar disorder
     Route: 065
  6. LORAZEPAM [Suspect]
     Active Substance: LORAZEPAM
     Dosage: ONCE A DAY (QD)
     Route: 065
  7. LORAZEPAM [Suspect]
     Active Substance: LORAZEPAM
     Dosage: DOSES INCREASING TO 8 MG/24 H
     Route: 065
  8. MIANSERIN [Suspect]
     Active Substance: MIANSERIN
     Indication: Sleep disorder
     Dosage: ONCE A DAY (QD) (BEFORE NIGHT)
     Route: 065
  9. PAROXETINE [Suspect]
     Active Substance: PAROXETINE
     Indication: Depression
     Route: 065
  10. PAROXETINE [Suspect]
     Active Substance: PAROXETINE
     Indication: Anxiety
     Dosage: ONCE A DAY (QD)
     Route: 065
  11. PAROXETINE [Suspect]
     Active Substance: PAROXETINE
     Indication: Bipolar disorder
  12. PROMETHAZINE [Suspect]
     Active Substance: PROMETHAZINE HYDROCHLORIDE
     Indication: Anxiety
     Dosage: (100 MILLIGRAM PER 24 HOUR)
     Route: 065
  13. PROMETHAZINE [Suspect]
     Active Substance: PROMETHAZINE HYDROCHLORIDE
     Indication: Bipolar disorder
  14. QUETIAPINE [Suspect]
     Active Substance: QUETIAPINE
     Indication: Anxiety
     Dosage: ONCE A DAY (QD) (DOSES INCREASING TO 300 MG/24 H)
     Route: 065
  15. QUETIAPINE [Suspect]
     Active Substance: QUETIAPINE
     Indication: Bipolar disorder
  16. REBOXETINE [Suspect]
     Active Substance: REBOXETINE
     Indication: Bipolar disorder
     Dosage: ONCE A DAY (QD) (4 MG/24HR)
     Route: 065
  17. REBOXETINE [Suspect]
     Active Substance: REBOXETINE
     Dosage: ONCE A DAY (QD) (8 MG/24HR)
     Route: 065
  18. REBOXETINE [Suspect]
     Active Substance: REBOXETINE
     Dosage: EACH HOUR (QH)
     Route: 065
  19. REBOXETINE [Suspect]
     Active Substance: REBOXETINE
     Dosage: EACH HOUR (QH)
     Route: 065
  20. SELENIUM [Suspect]
     Active Substance: SELENIUM
     Indication: Bipolar disorder
     Route: 065
  21. VENLAFAXINE [Suspect]
     Active Substance: VENLAFAXINE HYDROCHLORIDE
     Indication: Bipolar disorder
     Dosage: ONCE A DAY (QD) (75-150MG/24 HOUR)
     Route: 065
  22. VENLAFAXINE [Suspect]
     Active Substance: VENLAFAXINE HYDROCHLORIDE
     Route: 065
  23. VENLAFAXINE [Suspect]
     Active Substance: VENLAFAXINE HYDROCHLORIDE
     Dosage: ONCE A DAY (QD) (75-150MG/24 HOUR)
     Route: 065
  24. ZOLPIDEM [Suspect]
     Active Substance: ZOLPIDEM TARTRATE
     Indication: Bipolar disorder
     Dosage: ONCE A DAY (QD) (10 MG AT NIGHT )
     Route: 065
  25. LITHIUM CARBONATE [Concomitant]
     Active Substance: LITHIUM CARBONATE
     Indication: Bipolar disorder
     Dosage: ONCE A DAY (QD)
     Route: 065
  26. LITHIUM CARBONATE [Concomitant]
     Active Substance: LITHIUM CARBONATE
     Dosage: ONCE A DAY (QD)
     Route: 065

REACTIONS (9)
  - Therapeutic product effect incomplete [Unknown]
  - Drug dependence [Recovered/Resolved]
  - Hepatic enzyme increased [Unknown]
  - Fear [Recovering/Resolving]
  - Therapeutic response decreased [Unknown]
  - Sleep disorder [Recovering/Resolving]
  - Anxiety [Recovering/Resolving]
  - Withdrawal syndrome [Recovered/Resolved]
  - Depressed mood [Recovering/Resolving]
